FAERS Safety Report 8875867 (Version 1)
Quarter: 2012Q4

REPORT INFORMATION
  Report Type: 
  Country: GB (occurrence: GB)
  Receive Date: 20121030
  Receipt Date: 20121030
  Transmission Date: 20130627
  Serious: Yes (Death, Hospitalization)
  Sender: FDA-Public Use
  Company Number: GB-TEVA-365502ISR

PATIENT

DRUGS (26)
  1. SIMVASTATIN [Suspect]
     Dosage: 40 mg, UNK
  2. ZAPONEX [Suspect]
     Indication: SCHIZOPHRENIA
     Dosage: 800 Milligram Daily; 800 mg, daily
     Route: 048
     Dates: start: 20081209
  3. ZAPONEX [Suspect]
     Dosage: 600 Milligram Daily;
     Route: 048
  4. SERTRALINE [Concomitant]
     Dosage: 100 Milligram Daily; 100 mg, daily
  5. TAZOCIN [Concomitant]
     Dosage: UNK
  6. DEPO-PROVERA [Concomitant]
     Dosage: UNK
  7. LEVOTHYROXINE [Concomitant]
     Dosage: 25 ug, in the morning
  8. LANTUS [Concomitant]
     Dosage: UNK
  9. PARACETAMOL [Concomitant]
     Dosage: UNK
  10. APIDRA [Concomitant]
     Dosage: UNK
  11. OMEPRAZOLE [Concomitant]
     Dosage: 200 Milligram Daily; 200 mg, daily
  12. METFORMIN [Concomitant]
     Dosage: 1500 Milligram Daily; 500 mg, tid
  13. DIAZEPAM [Concomitant]
     Dosage: 10 Milligram Daily; 5 mg, bid
  14. DIHYDROCODEINE [Concomitant]
     Dosage: 30 mg, every 4-6 hours
  15. DIHYDROCODEINE [Concomitant]
     Dosage: 30mg every 4-6 hours
  16. DIHYDROCODEINE [Concomitant]
     Dosage: 30mg every 4-6 hours
  17. DIHYDROCODEINE [Concomitant]
     Dosage: 30mg every 4-6 hours
  18. LYMECYCLINE [Concomitant]
     Dosage: 408 Milligram Daily; 408 mg, daily
  19. LYMECYCLINE [Concomitant]
  20. LYMECYCLINE [Concomitant]
  21. LYMECYCLINE [Concomitant]
  22. CHLORPHENAMINE [Concomitant]
     Dosage: 4 mg, every 4-6 hours
  23. CHLORPHENAMINE [Concomitant]
     Dosage: 4mg every 4-6 hours
  24. CHLORPHENAMINE [Concomitant]
     Dosage: 4mg every 4-6 hours
  25. CHLORPHENAMINE [Concomitant]
     Dosage: 4mg every 4-6 hours
  26. FUROSEMIDE [Concomitant]
     Dosage: 20 mg, in the morning
     Dates: start: 20120730

REACTIONS (17)
  - Lymphoma [Unknown]
  - Electrocardiogram QT prolonged [Recovered/Resolved]
  - Endocarditis [Unknown]
  - Condition aggravated [Not Recovered/Not Resolved]
  - Malaise [Not Recovered/Not Resolved]
  - Mass [Not Recovered/Not Resolved]
  - Death [Fatal]
  - Furuncle [Unknown]
  - Neutrophil count increased [Unknown]
  - White blood cell count increased [Unknown]
  - Emotional distress [Not Recovered/Not Resolved]
  - Joint swelling [Not Recovered/Not Resolved]
  - Arthralgia [Not Recovered/Not Resolved]
  - Dyspnoea [Not Recovered/Not Resolved]
  - Inflammatory marker increased [Unknown]
  - Platelet count increased [Unknown]
  - Infection [Unknown]
